FAERS Safety Report 15320102 (Version 2)
Quarter: 2018Q4

REPORT INFORMATION
  Report Type: Spontaneous
  Country: US (occurrence: US)
  Receive Date: 20180827
  Receipt Date: 20181114
  Transmission Date: 20190204
  Serious: No
  Sender: FDA-Public Use
  Company Number: US-PFIZER INC-2018341398

PATIENT
  Age: 62 Year
  Sex: Female
  Weight: 57 kg

DRUGS (1)
  1. IBRANCE [Suspect]
     Active Substance: PALBOCICLIB
     Indication: BREAST CANCER FEMALE
     Dosage: 125 MG, CYCLIC (DAY 1-21 Q 28 DAYS)/[D1-21 Q28 DAYS]
     Route: 048
     Dates: start: 20180706

REACTIONS (3)
  - Hypoaesthesia oral [Unknown]
  - Lip dry [Unknown]
  - Oral pain [Unknown]

NARRATIVE: CASE EVENT DATE: 2018
